FAERS Safety Report 7837382 (Version 3)
Quarter: 2012Q4

REPORT INFORMATION
  Report Type: Report from Study
  Country: JP (occurrence: JP)
  Receive Date: 20110302
  Receipt Date: 20120917
  Transmission Date: 20130627
  Serious: Yes (Death, Hospitalization)
  Sender: FDA-Public Use
  Company Number: JP-ELI_LILLY_AND_COMPANY-JP201102007400

PATIENT
  Age: 89 Year
  Sex: Female
  Weight: 50.1 kg

DRUGS (2)
  1. PRASUGREL HYDROCHLORIDE [Suspect]
     Indication: ACUTE CORONARY SYNDROME
     Dosage: 20 mg, other
     Route: 048
     Dates: start: 20110215, end: 20110215
  2. PRASUGREL HYDROCHLORIDE [Suspect]
     Dosage: 3.75 mg, qd
     Dates: start: 20110216, end: 20110218

REACTIONS (5)
  - Cardiac failure [Fatal]
  - Mitral valve incompetence [Fatal]
  - Myocardial rupture [Recovered/Resolved]
  - Cardiac tamponade [Recovered/Resolved]
  - Bacterial infection [Recovered/Resolved]
